FAERS Safety Report 9330850 (Version 1)
Quarter: 2013Q2

REPORT INFORMATION
  Report Type: Spontaneous
  Country: GB (occurrence: GB)
  Receive Date: 20130605
  Receipt Date: 20130605
  Transmission Date: 20140414
  Serious: Yes (Disabling)
  Sender: FDA-Public Use
  Company Number: GB-ROCHE-1232365

PATIENT
  Age: 68 Year
  Sex: Female

DRUGS (5)
  1. GANCICLOVIR [Suspect]
     Indication: PRODUCT USED FOR UNKNOWN INDICATION
     Route: 042
     Dates: end: 20130512
  2. TEICOPLANIN [Suspect]
     Indication: PRODUCT USED FOR UNKNOWN INDICATION
     Route: 040
     Dates: end: 20130429
  3. CLARITHROMYCIN [Concomitant]
  4. PARACETAMOL [Concomitant]
  5. RANITIDINE [Concomitant]
     Route: 040

REACTIONS (1)
  - Deafness bilateral [Not Recovered/Not Resolved]
